FAERS Safety Report 6930720-6 (Version None)
Quarter: 2010Q3

REPORT INFORMATION
  Report Type: 
  Country: None (occurrence: None)
  Receive Date: 20100818
  Receipt Date: 20100804
  Transmission Date: 20110219
  Serious: Yes (Other)
  Sender: FDA-Public Use
  Company Number: JP-PFIZER INC-2010098139

PATIENT
  Age: 85 Year
  Sex: Female

DRUGS (8)
  1. LYRICA [Suspect]
     Indication: POST HERPETIC NEURALGIA
     Dosage: 75 MG, 2X/DAY
     Route: 048
     Dates: start: 20100722, end: 20100728
  2. RISPERDAL [Concomitant]
     Indication: PSYCHIATRIC SYMPTOM
     Dosage: 0.5 MG, UNK
     Route: 048
  3. GRAMALIL [Concomitant]
     Indication: PSYCHIATRIC SYMPTOM
     Dosage: 75 MG, UNK
     Route: 048
  4. NEUROTROPIN [Concomitant]
     Indication: POST HERPETIC NEURALGIA
     Dosage: UNK
     Route: 048
     Dates: start: 20100720, end: 20100721
  5. EBASTINE [Concomitant]
     Indication: PRURITUS
     Dosage: UNK
     Route: 048
     Dates: end: 20100728
  6. BIPERIDEN HYDROCHLORIDE [Concomitant]
     Indication: PSYCHIATRIC SYMPTOM
     Dosage: UNK
     Route: 048
  7. MOBIC [Concomitant]
     Indication: PAIN
     Dosage: UNK
     Route: 048
     Dates: end: 20100721
  8. OMEPRAZOLE [Concomitant]
     Indication: GASTRIC DISORDER
     Dosage: UNK
     Route: 048

REACTIONS (2)
  - CHOLECYSTITIS [None]
  - HEPATIC FUNCTION ABNORMAL [None]
